FAERS Safety Report 15794574 (Version 1)
Quarter: 2019Q1

REPORT INFORMATION
  Report Type: Spontaneous
  Country: US (occurrence: US)
  Receive Date: 20190107
  Receipt Date: 20190107
  Transmission Date: 20190417
  Serious: Yes (Death, Hospitalization)
  Sender: FDA-Public Use
  Company Number: US-JNJFOC-20190104000

PATIENT
  Age: 17 Year
  Sex: Male

DRUGS (6)
  1. CITALOPRAM [Suspect]
     Active Substance: CITALOPRAM HYDROBROMIDE
     Indication: SUICIDE ATTEMPT
     Route: 048
  2. OLANZAPINE. [Suspect]
     Active Substance: OLANZAPINE
     Indication: SUICIDE ATTEMPT
     Route: 048
  3. LAMOTRIGINE. [Suspect]
     Active Substance: LAMOTRIGINE
     Indication: SUICIDE ATTEMPT
     Route: 048
  4. ATOMOXETINE. [Suspect]
     Active Substance: ATOMOXETINE HYDROCHLORIDE
     Indication: SUICIDE ATTEMPT
     Route: 048
  5. TOPIRAMATE. [Suspect]
     Active Substance: TOPIRAMATE
     Indication: SUICIDE ATTEMPT
     Route: 048
  6. CLONIDINE. [Suspect]
     Active Substance: CLONIDINE
     Indication: SUICIDE ATTEMPT
     Route: 048

REACTIONS (1)
  - Toxicity to various agents [Fatal]
